FAERS Safety Report 23893151 (Version 1)
Quarter: 2024Q2

REPORT INFORMATION
  Report Type: Spontaneous
  Country: US (occurrence: None)
  Receive Date: 20240524
  Receipt Date: 20240524
  Transmission Date: 20240716
  Serious: No
  Sender: FDA-Public Use
  Company Number: US-ROCHE-3387423

PATIENT
  Sex: Female
  Weight: 63.56 kg

DRUGS (1)
  1. ACTEMRA [Suspect]
     Active Substance: TOCILIZUMAB
     Indication: Rheumatoid arthritis
     Route: 058
     Dates: start: 20230419

REACTIONS (5)
  - Urethral pain [Unknown]
  - Bladder pain [Unknown]
  - Pollakiuria [Unknown]
  - Blood urine present [Unknown]
  - Bladder spasm [Unknown]
